FAERS Safety Report 21399230 (Version 1)
Quarter: 2022Q4

REPORT INFORMATION
  Report Type: Report from Study
  Country: US (occurrence: US)
  Receive Date: 20221001
  Receipt Date: 20221001
  Transmission Date: 20230113
  Serious: No
  Sender: FDA-Public Use
  Company Number: US-ABBVIE-4133354

PATIENT
  Sex: Female

DRUGS (1)
  1. SKYRIZI [Suspect]
     Active Substance: RISANKIZUMAB-RZAA
     Indication: Psoriasis
     Dosage: 150MG WEEK 0, WEEK 4 AND THEN EVERY 12 WEEKS
     Route: 058
     Dates: start: 20220808

REACTIONS (8)
  - Intervertebral disc degeneration [Unknown]
  - Psoriasis [Unknown]
  - Drug ineffective [Unknown]
  - Seasonal allergy [Unknown]
  - Pain [Unknown]
  - Burning sensation [Unknown]
  - Sinus disorder [Unknown]
  - General physical health deterioration [Unknown]

NARRATIVE: CASE EVENT DATE: 20220101
